FAERS Safety Report 5310345-9 (Version None)
Quarter: 2007Q2

REPORT INFORMATION
  Report Type: 
  Country: None (occurrence: None)
  Receive Date: 20070427
  Receipt Date: 20070417
  Transmission Date: 20071010
  Serious: Yes (Hospitalization, Other)
  Sender: FDA-Public Use
  Company Number: US-ELI_LILLY_AND_COMPANY-US200703004804

PATIENT
  Age: 43 Year
  Sex: Male

DRUGS (2)
  1. HUMALOG [Suspect]
     Indication: DIABETES MELLITUS NON-INSULIN-DEPENDENT
     Dosage: 30 U, 2/D
     Dates: start: 20000101
  2. HUMALOG [Suspect]
     Dosage: 30 U, 2/D
     Dates: start: 20000101

REACTIONS (7)
  - INTERVERTEBRAL DISC PROTRUSION [None]
  - NERVE COMPRESSION [None]
  - PAIN [None]
  - POOR PERIPHERAL CIRCULATION [None]
  - SPINAL COLUMN STENOSIS [None]
  - SQUAMOUS CELL CARCINOMA [None]
  - TONSIL CANCER [None]
